FAERS Safety Report 6389105-6 (Version None)
Quarter: 2009Q4

REPORT INFORMATION
  Report Type: 
  Country: None (occurrence: None)
  Receive Date: 20091006
  Receipt Date: 20090928
  Transmission Date: 20100525
  Serious: Yes (Hospitalization)
  Sender: FDA-Public Use
  Company Number: US-BIOGENIDEC-2009BI026593

PATIENT
  Age: 43 Year
  Sex: Female

DRUGS (1)
  1. AVONEX [Suspect]
     Indication: MULTIPLE SCLEROSIS
     Route: 030
     Dates: start: 20090320

REACTIONS (8)
  - ARTHROPATHY [None]
  - COUGH [None]
  - DYSGRAPHIA [None]
  - DYSPNOEA [None]
  - FACIAL PAIN [None]
  - FACIAL PALSY [None]
  - HEADACHE [None]
  - MULTIPLE SCLEROSIS [None]
